FAERS Safety Report 4433061-4 (Version None)
Quarter: 2004Q3

REPORT INFORMATION
  Report Type: 
  Country: None (occurrence: None)
  Receive Date: 20040823
  Receipt Date: 20040810
  Transmission Date: 20050211
  Serious: Yes (Hospitalization)
  Sender: FDA-Public Use
  Company Number: 205774

PATIENT
  Age: 59 Year
  Sex: Female
  Weight: 62.1 kg

DRUGS (9)
  1. BEVACIZUMAB(BEVACIZUMAB) PWDR + SOLVENT,INFUSION SOLN, 100MG [Suspect]
     Indication: COLORECTAL CANCER METASTATIC
     Dosage: 10 MG/KG, Q2W, INTRAVENOUS
     Route: 042
     Dates: start: 20040210
  2. OXALIPLATIN (OXALIPLATIN) [Suspect]
     Indication: COLORECTAL CANCER METASTATIC
     Dosage: 85 MG/M2, INTRAVENOUS
     Route: 042
     Dates: start: 20040210
  3. XELODA [Suspect]
     Indication: COLORECTAL CANCER METASTATIC
     Dosage: 1000 MG/M2, ORAL
     Route: 048
     Dates: start: 20040210
  4. K-DUR 10 [Concomitant]
  5. METOPROLOL TARTRATE [Concomitant]
  6. FUROSEMIDE [Concomitant]
  7. COLACE (DOCUSATE SODIUM) [Concomitant]
  8. TYLENOL [Concomitant]
  9. DECADRON [Concomitant]

REACTIONS (6)
  - APHASIA [None]
  - CONFUSIONAL STATE [None]
  - ENCEPHALOMALACIA [None]
  - MEMORY IMPAIRMENT [None]
  - MENTAL STATUS CHANGES [None]
  - POST PROCEDURAL COMPLICATION [None]
